FAERS Safety Report 25960090 (Version 1)
Quarter: 2025Q4

REPORT INFORMATION
  Report Type: Spontaneous
  Country: US (occurrence: US)
  Receive Date: 20251026
  Receipt Date: 20251026
  Transmission Date: 20260118
  Serious: No
  Sender: SANOFI AVENTIS
  Company Number: US-SA-2025SA315806

PATIENT
  Age: 9 Year
  Sex: Male

DRUGS (3)
  1. DUPIXENT [Suspect]
     Active Substance: DUPILUMAB
     Indication: Asthma
     Dosage: 600MG
     Route: 058
     Dates: start: 20250306, end: 20250306
  2. DUPIXENT [Suspect]
     Active Substance: DUPILUMAB
     Indication: Hypersensitivity
     Dosage: 300MG, QOW
     Route: 058
     Dates: start: 2025
  3. DUPIXENT [Suspect]
     Active Substance: DUPILUMAB
     Indication: Eczema

REACTIONS (5)
  - Hypersensitivity [Recovered/Resolved]
  - Nasal congestion [Recovered/Resolved]
  - Diarrhoea [Recovered/Resolved]
  - Rhinorrhoea [Recovered/Resolved]
  - Product use in unapproved indication [Unknown]

NARRATIVE: CASE EVENT DATE: 20250306
